FAERS Safety Report 15440350 (Version 1)
Quarter: 2018Q3

REPORT INFORMATION
  Report Type: Spontaneous
  Country: UA (occurrence: UA)
  Receive Date: 20180928
  Receipt Date: 20180928
  Transmission Date: 20181010
  Serious: Yes (Death)
  Sender: FDA-Public Use
  Company Number: PHHY2018UA110252

PATIENT
  Sex: Male

DRUGS (1)
  1. METHOTREXATE. [Suspect]
     Active Substance: METHOTREXATE
     Indication: NON-HODGKIN^S LYMPHOMA STAGE II
     Dosage: 1 G, UNK
     Route: 065

REACTIONS (4)
  - Leukopenia [Fatal]
  - Pneumonia [Fatal]
  - Acute myeloid leukaemia [Fatal]
  - Sepsis [Fatal]
